FAERS Safety Report 24802427 (Version 2)
Quarter: 2025Q3

REPORT INFORMATION
  Report Type: Spontaneous
  Country: US (occurrence: US)
  Receive Date: 20250103
  Receipt Date: 20250810
  Transmission Date: 20251020
  Serious: No
  Sender: ALEXION PHARMACEUTICALS
  Company Number: US-AstraZeneca-CH-00777560A

PATIENT
  Sex: Female

DRUGS (1)
  1. TAGRISSO [Suspect]
     Active Substance: OSIMERTINIB
     Indication: Metastasis

REACTIONS (6)
  - Skin atrophy [Unknown]
  - Product label confusion [Unknown]
  - Stomatitis [Unknown]
  - Bone pain [Unknown]
  - Rash macular [Unknown]
  - Wrong dose [Unknown]
